FAERS Safety Report 6265759-X (Version None)
Quarter: 2009Q3

REPORT INFORMATION
  Report Type: 
  Country: None (occurrence: None)
  Receive Date: 20090713
  Receipt Date: 20090701
  Transmission Date: 20100115
  Serious: Yes (Hospitalization)
  Sender: FDA-Public Use
  Company Number: FR-WYE-H10037509

PATIENT
  Sex: Male

DRUGS (17)
  1. CORDARONE [Suspect]
     Indication: ISCHAEMIC CARDIOMYOPATHY
     Route: 048
  2. DURAGESIC-100 [Suspect]
     Indication: BACK PAIN
     Route: 062
     Dates: start: 20081209, end: 20081215
  3. BIPRETERAX [Suspect]
     Route: 048
     Dates: end: 20081218
  4. TEMESTA [Suspect]
     Indication: ANXIETY
     Route: 048
     Dates: end: 20081218
  5. ZOCOR [Concomitant]
     Route: 048
     Dates: end: 20081218
  6. KARDEGIC [Concomitant]
     Route: 048
  7. VASTAREL [Concomitant]
     Route: 048
     Dates: end: 20081218
  8. DIFFU K [Concomitant]
     Route: 048
     Dates: end: 20081218
  9. PERMIXON [Concomitant]
     Route: 048
     Dates: end: 20081218
  10. INIPOMP [Concomitant]
     Route: 048
  11. LEVOTHYROX [Concomitant]
     Route: 048
  12. PREVISCAN [Concomitant]
     Route: 048
     Dates: end: 20081218
  13. PARACETAMOL [Concomitant]
     Dosage: 4 G
     Dates: end: 20081218
  14. XALATAN [Concomitant]
     Route: 047
  15. FORLAX [Concomitant]
     Route: 048
  16. EDUCTYL [Concomitant]
     Dosage: WHEN NEEDED IF NO STOOL FOR 3 DAYS
     Route: 054
  17. LASIX [Suspect]
     Route: 048
     Dates: end: 20081218

REACTIONS (3)
  - HYPOKALAEMIA [None]
  - HYPONATRAEMIA [None]
  - ORTHOSTATIC HYPOTENSION [None]
